FAERS Safety Report 23830618 (Version 1)
Quarter: 2024Q2

REPORT INFORMATION
  Report Type: Spontaneous
  Country: PT (occurrence: PT)
  Receive Date: 20240508
  Receipt Date: 20240508
  Transmission Date: 20240715
  Serious: Yes (Other)
  Sender: FDA-Public Use
  Company Number: None

PATIENT
  Age: 3 Year
  Sex: Male
  Weight: 12.6 kg

DRUGS (8)
  1. VEKLURY [Suspect]
     Active Substance: REMDESIVIR
     Indication: COVID-19
     Dosage: 30 MG (POWDER FOR CONCENTRATE FOR SOLUTION FOR INFUSION)
     Route: 042
     Dates: start: 20210806, end: 20210810
  2. CLONAZEPAM [Concomitant]
     Active Substance: CLONAZEPAM
  3. PERAMPANEL [Concomitant]
     Active Substance: PERAMPANEL
  4. ACYCLOVIR [Concomitant]
     Active Substance: ACYCLOVIR
  5. CEFTRIAXONA + SULBACTAM [Concomitant]
  6. FLUCONAZOLE [Concomitant]
     Active Substance: FLUCONAZOLE
  7. VIGABATRIN [Concomitant]
     Active Substance: VIGABATRIN
  8. CLINDAMICINA / CLOTRIMAZOL [Concomitant]

REACTIONS (1)
  - Bradycardia [Recovered/Resolved]

NARRATIVE: CASE EVENT DATE: 20210810
